FAERS Safety Report 8784180 (Version 1)
Quarter: 2012Q4

REPORT INFORMATION
  Report Type: Spontaneous
  Country: US (occurrence: None)
  Receive Date: 20120906
  Receipt Date: 20120906
  Transmission Date: 20130627
  Serious: Yes (Hospitalization)
  Sender: FDA-Public Use
  Company Number: None

PATIENT
  Age: 64 Year
  Weight: 71 kg

DRUGS (2)
  1. AMRUBICIN [Suspect]
     Indication: BLADDER CANCER
     Dosage: day 1-3
     Route: 042
  2. ONDASETRON [Concomitant]

REACTIONS (9)
  - Diarrhoea [None]
  - Hypokalaemia [None]
  - Constipation [None]
  - Abdominal distension [None]
  - Nausea [None]
  - Ileus paralytic [None]
  - Intestinal obstruction [None]
  - Bladder transitional cell carcinoma stage I [None]
  - Neoplasm progression [None]
